FAERS Safety Report 5277825-6 (Version None)
Quarter: 2007Q1

REPORT INFORMATION
  Report Type: 
  Country: None (occurrence: None)
  Receive Date: 20070327
  Receipt Date: 20070315
  Transmission Date: 20070707
  Serious: Yes (Other)
  Sender: FDA-Public Use
  Company Number: US-PFIZER INC-2007008177

PATIENT
  Age: 66 Year
  Sex: Male
  Weight: 108.9 kg

DRUGS (19)
  1. LIPITOR [Suspect]
     Dosage: DAILY DOSE:20MG
  2. ADVAIR DISKUS 100/50 [Concomitant]
     Route: 048
  3. ALPHAGAN [Concomitant]
     Route: 047
  4. ARANESP [Concomitant]
  5. ASPIRIN [Concomitant]
     Route: 048
  6. AVANDIA [Concomitant]
     Route: 048
  7. CALTRATE [Concomitant]
     Route: 048
  8. CELLCEPT [Concomitant]
     Route: 048
  9. FERROUS SULFATE [Concomitant]
     Route: 048
  10. FUROSEMIDE [Concomitant]
     Route: 048
  11. CHONDROITIN/GLUCOSAMINE [Concomitant]
     Route: 048
  12. INSULIN SUSPENSION, NPH [Concomitant]
  13. REGULAR INSULIN [Concomitant]
  14. LUMIGAN [Concomitant]
  15. MULTI-VITAMINS [Concomitant]
     Route: 048
     Dates: start: 20040419
  16. NEORAL [Concomitant]
     Route: 048
  17. PREDNISONE [Concomitant]
     Route: 048
  18. TOPROL-XL [Concomitant]
     Route: 048
  19. VITAMIN B-12 [Concomitant]
     Route: 030

REACTIONS (2)
  - AMNESIA [None]
  - RENAL TRANSPLANT [None]
